FAERS Safety Report 24220178 (Version 1)
Quarter: 2024Q3

REPORT INFORMATION
  Report Type: Spontaneous
  Country: EC (occurrence: EC)
  Receive Date: 20240817
  Receipt Date: 20240817
  Transmission Date: 20241016
  Serious: Yes (Other)
  Sender: AMGEN
  Company Number: EC-AMGEN-ECUSP2024159681

PATIENT

DRUGS (2)
  1. ROMIPLOSTIM [Suspect]
     Active Substance: ROMIPLOSTIM
     Indication: Immune thrombocytopenia
     Dosage: UNK
     Route: 065
  2. CORTICOSTEROID NOS [Concomitant]
     Active Substance: CORTICOSTEROID NOS

REACTIONS (4)
  - Portal vein thrombosis [Unknown]
  - Pulmonary embolism [Unknown]
  - Therapy non-responder [Unknown]
  - Therapy cessation [Unknown]
